FAERS Safety Report 7925145-0 (Version None)
Quarter: 2011Q4

REPORT INFORMATION
  Report Type: 
  Country: None (occurrence: None)
  Receive Date: 20111118
  Receipt Date: 20111117
  Transmission Date: 20120403
  Serious: Yes (Hospitalization)
  Sender: FDA-Public Use
  Company Number: AT-ROCHE-1009327

PATIENT
  Age: 62 Year
  Sex: Male

DRUGS (6)
  1. IRINOTECAN HYDROCHLORIDE [Suspect]
     Indication: GLIOMATOSIS CEREBRI
     Dates: start: 20100813, end: 20100825
  2. KEPPRA [Concomitant]
  3. AVASTIN [Suspect]
     Indication: GLIOMATOSIS CEREBRI
     Route: 042
     Dates: start: 20100813, end: 20100825
  4. AMLODIPINE [Concomitant]
  5. ASPIRIN [Concomitant]
  6. CYMBALTA [Concomitant]

REACTIONS (1)
  - EPILEPSY [None]
